FAERS Safety Report 8822075 (Version 2)
Quarter: 2012Q4

REPORT INFORMATION
  Report Type: 
  Country: US (occurrence: US)
  Receive Date: 20121003
  Receipt Date: 20121220
  Transmission Date: 20130627
  Serious: Yes (Hospitalization, Disabling, Other)
  Sender: FDA-Public Use
  Company Number: US-009507513-1103USA00931

PATIENT

DRUGS (9)
  1. FOSAMAX [Suspect]
     Indication: OSTEOPOROSIS
     Dosage: 70 mg, UNK
     Route: 048
     Dates: start: 19951120, end: 20080322
  2. FOSAMAX [Suspect]
     Indication: OSTEOPENIA
     Dosage: 10 mg, qd
     Route: 048
     Dates: start: 19960122, end: 200010
  3. FOSAMAX [Suspect]
     Dosage: UNK
     Route: 048
     Dates: start: 200804
  4. ALENDRONATE SODIUM [Suspect]
     Indication: OSTEOPOROSIS
     Dosage: 70 mg, UNK
     Route: 048
     Dates: start: 20080322, end: 20100308
  5. ALENDRONATE SODIUM [Suspect]
     Indication: OSTEOPENIA
  6. DIDRONEL [Suspect]
     Indication: OSTEOPOROSIS
     Dosage: 400 mg, UNK
     Route: 048
     Dates: start: 19951001, end: 19951120
  7. CALCIUM (UNSPECIFIED) [Concomitant]
     Indication: PRODUCT USED FOR UNKNOWN INDICATION
     Dosage: 1200 mg, qd
     Dates: start: 2000
  8. PRILOSEC [Concomitant]
     Indication: PEPTIC ULCER
     Dosage: UNK
     Dates: start: 1995
  9. PREDNISONE [Suspect]
     Dosage: 1 mg, qd
     Route: 048
     Dates: start: 1995

REACTIONS (53)
  - Femur fracture [Recovered/Resolved]
  - Femur fracture [Unknown]
  - Low turnover osteopathy [Not Recovered/Not Resolved]
  - Open reduction of fracture [Unknown]
  - Open reduction of fracture [Unknown]
  - Open reduction of fracture [Recovering/Resolving]
  - Breast cancer [Unknown]
  - Aspartate aminotransferase increased [Unknown]
  - Alanine aminotransferase increased [Unknown]
  - Phrenic nerve paralysis [Unknown]
  - Sjogren^s syndrome [Unknown]
  - Iliotibial band syndrome [Unknown]
  - Stress fracture [Unknown]
  - Laceration [Unknown]
  - Hypoaesthesia [Unknown]
  - Psoriasis [Unknown]
  - Neuroma [Unknown]
  - Arthritis [Unknown]
  - Wrist fracture [Recovering/Resolving]
  - Road traffic accident [Unknown]
  - Allergy to vaccine [Unknown]
  - Pain [Unknown]
  - Injection site erythema [Unknown]
  - Polyarthritis [Unknown]
  - Rhinitis seasonal [Unknown]
  - Hot flush [Unknown]
  - Menstruation irregular [Unknown]
  - Dry eye [Unknown]
  - Osteoarthritis [Unknown]
  - Spinal osteoarthritis [Unknown]
  - Vertebral foraminal stenosis [Unknown]
  - Gait disturbance [Unknown]
  - Foot deformity [Unknown]
  - Myofascial pain syndrome [Unknown]
  - Breast cellulitis [Unknown]
  - Pathological fracture [Unknown]
  - Photophobia [Unknown]
  - Optic neuropathy [Unknown]
  - Rheumatoid arthritis [Unknown]
  - Dyspnoea exertional [Unknown]
  - Electrocardiogram abnormal [Unknown]
  - Breast lump removal [Unknown]
  - Rib fracture [Recovered/Resolved]
  - Hepatic steatosis [Unknown]
  - Fall [Unknown]
  - Drug administration error [Unknown]
  - Dry skin [Not Recovered/Not Resolved]
  - Tendonitis [Not Recovered/Not Resolved]
  - Intervertebral disc disorder [Unknown]
  - Rash erythematous [Unknown]
  - Myalgia [Not Recovered/Not Resolved]
  - Arthralgia [Unknown]
  - Arthralgia [Unknown]
